FAERS Safety Report 8086570-3 (Version None)
Quarter: 2012Q1

REPORT INFORMATION
  Report Type: 
  Country: None (occurrence: None)
  Receive Date: 20120128
  Receipt Date: 20110511
  Transmission Date: 20120608
  Serious: No
  Sender: FDA-Public Use
  Company Number: US-ABBOTT-11P-163-0725081-00

PATIENT
  Age: 33 Year
  Sex: Female

DRUGS (4)
  1. MULTIVITAMIN [Concomitant]
     Indication: VITAMIN SUPPLEMENTATION
     Dosage: DAILY
  2. UNKNOWN INHALER [Concomitant]
     Indication: ASTHMA
     Route: 055
  3. HUMIRA [Suspect]
     Indication: CROHN'S DISEASE
     Dates: start: 20110427
  4. COUMADIN [Concomitant]
     Indication: DEEP VEIN THROMBOSIS

REACTIONS (1)
  - INJECTION SITE PAIN [None]
